FAERS Safety Report 4395027-2 (Version None)
Quarter: 2004Q3

REPORT INFORMATION
  Report Type: 
  Country: None (occurrence: None)
  Receive Date: 20040706
  Receipt Date: 20040615
  Transmission Date: 20050211
  Serious: Yes (Disabling, Other)
  Sender: FDA-Public Use
  Company Number: WAES 0404USA01666

PATIENT
  Age: 68 Year
  Sex: Male
  Weight: 70.7611 kg

DRUGS (6)
  1. ZOCOR [Suspect]
     Indication: HYPERCHOLESTEROLAEMIA
     Dosage: 20 MG/DAILY/PO
     Route: 048
     Dates: start: 20030618, end: 20030909
  2. CENTRUM [Concomitant]
  3. GLUCOTROL XL [Concomitant]
  4. ASPIRIN [Concomitant]
  5. CALCIUM (UNSPECIFIED) [Concomitant]
  6. VITAMIN E [Concomitant]

REACTIONS (1)
  - PEMPHIGOID [None]
